FAERS Safety Report 8588700 (Version 86)
Quarter: 2019Q3

REPORT INFORMATION
  Report Type: Report from Study
  Country: CA (occurrence: CA)
  Receive Date: 20120531
  Receipt Date: 20190924
  Transmission Date: 20191005
  Serious: Yes (Hospitalization, Other)
  Sender: FDA-Public Use
  Company Number: PHHY2009CA44549

PATIENT
  Age: 59 Year
  Sex: Female

DRUGS (23)
  1. HCTZ [Concomitant]
     Active Substance: HYDROCHLOROTHIAZIDE
     Dosage: UNK
     Route: 065
     Dates: start: 20190612
  2. METOPROLOL. [Concomitant]
     Active Substance: METOPROLOL
     Dosage: 25 MG, BID
     Route: 048
  3. CANDESARTAN CILEXETIL. [Suspect]
     Active Substance: CANDESARTAN CILEXETIL
     Dosage: 4 MG, QD
     Route: 065
     Dates: start: 20190613
  4. METOPROLOL. [Concomitant]
     Active Substance: METOPROLOL
     Dosage: 100 MG, BID
     Route: 065
     Dates: start: 20180429
  5. METFORMIN [Concomitant]
     Active Substance: METFORMIN HYDROCHLORIDE
     Indication: PRODUCT USED FOR UNKNOWN INDICATION
     Dosage: 1000 MG, BID
     Route: 065
  6. CANDESARTAN CILEXETIL. [Suspect]
     Active Substance: CANDESARTAN CILEXETIL
     Dosage: 24 MG, QD
     Route: 065
  7. CANDESARTAN CILEXETIL. [Suspect]
     Active Substance: CANDESARTAN CILEXETIL
     Dosage: 8 MG, QD (IN MORNING)
     Route: 065
     Dates: start: 20190320
  8. METOPROLOL. [Concomitant]
     Active Substance: METOPROLOL
     Dosage: 75 MG, BID
     Route: 065
  9. SANDOSTATIN LAR DEPOT [Suspect]
     Active Substance: OCTREOTIDE ACETATE
     Indication: CARCINOID TUMOUR OF THE SMALL BOWEL
     Dosage: 60 MG, QMO (EVERY 4 WEEKS)
     Route: 030
     Dates: start: 20060530
  10. SANDOSTATIN LAR DEPOT [Suspect]
     Active Substance: OCTREOTIDE ACETATE
     Indication: METASTASES TO LIVER
  11. CANDESARTAN CILEXETIL. [Suspect]
     Active Substance: CANDESARTAN CILEXETIL
     Indication: BLOOD PRESSURE INCREASED
     Dosage: 16 MG, QD
     Route: 065
  12. METOPROLOL. [Concomitant]
     Active Substance: METOPROLOL
     Dosage: 50 MG, BID
     Route: 048
     Dates: start: 20171103
  13. NAPROSYN [Concomitant]
     Active Substance: NAPROXEN
     Indication: PRODUCT USED FOR UNKNOWN INDICATION
     Route: 065
  14. METOPROLOL. [Concomitant]
     Active Substance: METOPROLOL
     Dosage: 37.5 MG, BID
     Route: 065
  15. AMLODIPINE [Suspect]
     Active Substance: AMLODIPINE BESYLATE
     Indication: PRODUCT USED FOR UNKNOWN INDICATION
     Dosage: 2.5 MG, QD
     Route: 065
  16. AMLODIPINE [Suspect]
     Active Substance: AMLODIPINE BESYLATE
     Dosage: 5 MG, QD (IN MORNING)
     Route: 065
  17. BETAHISTINE [Concomitant]
     Active Substance: BETAHISTINE
     Indication: PRODUCT USED FOR UNKNOWN INDICATION
     Dosage: 12 MG, UNK
     Route: 065
  18. HCTZ [Concomitant]
     Active Substance: HYDROCHLOROTHIAZIDE
     Indication: PRODUCT USED FOR UNKNOWN INDICATION
     Dosage: 25 MG, QD
     Route: 065
  19. METOPROLOL. [Concomitant]
     Active Substance: METOPROLOL
     Dosage: 12.5 MG, BID
     Route: 065
  20. METOPROLOL. [Concomitant]
     Active Substance: METOPROLOL
     Dosage: 50 MG, BID
     Route: 065
  21. METOPROLOL. [Concomitant]
     Active Substance: METOPROLOL
     Indication: PRODUCT USED FOR UNKNOWN INDICATION
     Dosage: 50 MG, BID
     Route: 048
  22. METFORMIN [Concomitant]
     Active Substance: METFORMIN HYDROCHLORIDE
     Dosage: 500 MG, BID
     Dates: start: 20190320
  23. GLICLAZIDE [Concomitant]
     Active Substance: GLICLAZIDE
     Indication: PRODUCT USED FOR UNKNOWN INDICATION
     Route: 065

REACTIONS (84)
  - Blood pressure increased [Unknown]
  - Syncope [Unknown]
  - Cellulitis [Unknown]
  - Malignant neoplasm progression [Unknown]
  - Palpitations [Recovered/Resolved]
  - Hepatic pain [Recovering/Resolving]
  - Haemoglobin decreased [Recovering/Resolving]
  - Blood urine present [Unknown]
  - Endometriosis [Unknown]
  - Dizziness [Unknown]
  - Abdominal tenderness [Not Recovered/Not Resolved]
  - Injection site mass [Unknown]
  - Injection site pain [Unknown]
  - Hypoaesthesia [Unknown]
  - Arthralgia [Recovering/Resolving]
  - Subcutaneous haematoma [Recovering/Resolving]
  - Joint swelling [Recovered/Resolved]
  - Rash pruritic [Unknown]
  - Nausea [Unknown]
  - Injection site reaction [Unknown]
  - Metastases to ovary [Unknown]
  - Back pain [Recovered/Resolved]
  - Groin pain [Unknown]
  - Urinary tract infection [Unknown]
  - Liver function test increased [Recovered/Resolved]
  - Polyp [Unknown]
  - Blood pressure systolic decreased [Unknown]
  - Peripheral swelling [Unknown]
  - Cholelithiasis [Unknown]
  - Nephrolithiasis [Unknown]
  - Renal impairment [Recovered/Resolved]
  - Peripheral swelling [Recovered/Resolved]
  - Urine output decreased [Unknown]
  - Contusion [Unknown]
  - Acne [Unknown]
  - Abdominal adhesions [Unknown]
  - Anaemia [Unknown]
  - Blood pressure diastolic decreased [Unknown]
  - Arthritis [Unknown]
  - Gout [Unknown]
  - Fatigue [Recovering/Resolving]
  - Paraesthesia [Unknown]
  - Metastases to bladder [Unknown]
  - Hypothyroidism [Recovering/Resolving]
  - Myalgia [Unknown]
  - Muscle tightness [Unknown]
  - Nasopharyngitis [Recovering/Resolving]
  - Hypomenorrhoea [Unknown]
  - Poor quality sleep [Unknown]
  - Malaise [Unknown]
  - Joint stiffness [Unknown]
  - Rash papular [Unknown]
  - Injection site pain [Recovered/Resolved]
  - Carcinoid tumour [Unknown]
  - Metastases to fallopian tube [Unknown]
  - Muscle spasms [Unknown]
  - Serum serotonin increased [Unknown]
  - White blood cell count increased [Recovered/Resolved]
  - Pyrexia [Unknown]
  - Erythema [Recovered/Resolved]
  - Heart rate decreased [Unknown]
  - Abdominal pain [Recovering/Resolving]
  - Blood iron decreased [Unknown]
  - Endometrial cancer stage I [Unknown]
  - Renal failure [Unknown]
  - Procedural pain [Unknown]
  - Pain in extremity [Unknown]
  - Endometrial hyperplasia [Unknown]
  - Migraine [Unknown]
  - Injection site erythema [Unknown]
  - Neuralgia [Unknown]
  - Pain [Recovering/Resolving]
  - Diabetes mellitus [Unknown]
  - Haemorrhage [Unknown]
  - Second primary malignancy [Unknown]
  - Vertigo [Unknown]
  - Chills [Unknown]
  - Cough [Unknown]
  - Crystal arthropathy [Unknown]
  - Joint swelling [Unknown]
  - Asthenia [Unknown]
  - Vomiting [Unknown]
  - Diarrhoea [Recovered/Resolved]
  - Needle issue [Unknown]

NARRATIVE: CASE EVENT DATE: 20130128
